FAERS Safety Report 4442604-6 (Version None)
Quarter: 2004Q3

REPORT INFORMATION
  Report Type: 
  Country: None (occurrence: None)
  Receive Date: 20040903
  Receipt Date: 20040720
  Transmission Date: 20050211
  Serious: Yes (Other)
  Sender: FDA-Public Use
  Company Number: 2004UW15226

PATIENT
  Age: 67 Year
  Sex: Female
  Weight: 84.8226 kg

DRUGS (4)
  1. CRESTOR [Suspect]
     Indication: BLOOD CHOLESTEROL INCREASED
     Dosage: 10 MG PO
     Route: 048
     Dates: start: 20031001
  2. LEXAPRO [Concomitant]
  3. PREVACID [Concomitant]
  4. PLAVIX [Concomitant]

REACTIONS (3)
  - DYSSTASIA [None]
  - MUSCLE CRAMP [None]
  - OEDEMA PERIPHERAL [None]
